FAERS Safety Report 16907236 (Version 1)
Quarter: 2019Q4

REPORT INFORMATION
  Report Type: Report from Study
  Country: None (occurrence: US)
  Receive Date: 20191011
  Receipt Date: 20191011
  Transmission Date: 20200122
  Serious: Yes (Hospitalization, Other)
  Sender: FDA-Public Use
  Company Number: US-ABBVIE-19K-163-2923001-00

PATIENT
  Sex: Female
  Weight: 99.88 kg

DRUGS (1)
  1. VENCLEXTA [Suspect]
     Active Substance: VENETOCLAX
     Indication: ACUTE MYELOID LEUKAEMIA
     Route: 048
     Dates: start: 201908

REACTIONS (3)
  - Tachycardia [Unknown]
  - Infection [Unknown]
  - Leukaemia [Unknown]

NARRATIVE: CASE EVENT DATE: 2019
